FAERS Safety Report 9003724 (Version 1)
Quarter: 2013Q1

REPORT INFORMATION
  Report Type: Spontaneous
  Country: US (occurrence: US)
  Receive Date: 20130108
  Receipt Date: 20130108
  Transmission Date: 20140127
  Serious: No
  Sender: FDA-Public Use
  Company Number: US-GLAXOSMITHKLINE-A0967878A

PATIENT
  Age: 66 Year
  Sex: Female

DRUGS (5)
  1. LOVAZA [Suspect]
     Indication: BLOOD TRIGLYCERIDES INCREASED
     Dosage: 1G TWICE PER DAY
     Route: 048
     Dates: start: 20120115
  2. LISINOPRIL [Concomitant]
  3. LIPITOR [Concomitant]
  4. OMEPRAZOLE [Concomitant]
  5. ALPRAZOLAM [Concomitant]

REACTIONS (3)
  - Fatigue [Not Recovered/Not Resolved]
  - Feeling abnormal [Unknown]
  - Asthenia [Unknown]
